FAERS Safety Report 6243902-6 (Version None)
Quarter: 2009Q2

REPORT INFORMATION
  Report Type: 
  Country: None (occurrence: None)
  Receive Date: 20090623
  Receipt Date: 20090610
  Transmission Date: 20091009
  Serious: Yes (Death, Other)
  Sender: FDA-Public Use
  Company Number: 1-18782817

PATIENT
  Sex: Male

DRUGS (7)
  1. FENTANYL [Suspect]
     Indication: CANCER PAIN
     Dosage: 25 MCG/HR EVERY 3 DAYS, TRANSDERMAL
     Route: 062
     Dates: start: 20090610, end: 20090612
  2. LEXAPRO [Concomitant]
  3. OXYCODONE [Concomitant]
  4. OXYCONTIN [Concomitant]
  5. BENZONATATE [Concomitant]
  6. DIGOXIN [Concomitant]
  7. LEVAQUIN [Concomitant]

REACTIONS (4)
  - INADEQUATE ANALGESIA [None]
  - LOSS OF CONSCIOUSNESS [None]
  - PAIN [None]
  - UNRESPONSIVE TO STIMULI [None]
